FAERS Safety Report 11190599 (Version 1)
Quarter: 2015Q2

REPORT INFORMATION
  Report Type: Spontaneous
  Country: DE (occurrence: DE)
  Receive Date: 20150615
  Receipt Date: 20150615
  Transmission Date: 20150821
  Serious: Yes (Other)
  Sender: FDA-Public Use
  Company Number: DE-AMGEN-DEUSP2014080746

PATIENT
  Age: 19 Year
  Sex: Female

DRUGS (5)
  1. VITAMIN D3 [Concomitant]
     Active Substance: CHOLECALCIFEROL
  2. VOMEX A [Concomitant]
     Active Substance: DIMENHYDRINATE
  3. ARCOXIA [Concomitant]
     Active Substance: ETORICOXIB
  4. PROLIA [Suspect]
     Active Substance: DENOSUMAB
     Indication: OSTEOPOROSIS
     Dosage: 60 MG, UNK
     Route: 065
     Dates: start: 201407
  5. NEXIUM [Concomitant]
     Active Substance: ESOMEPRAZOLE MAGNESIUM

REACTIONS (8)
  - Skin discolouration [Unknown]
  - Bone marrow oedema [Unknown]
  - Underweight [Unknown]
  - Gastrointestinal disorder [Unknown]
  - Alopecia [Unknown]
  - Off label use [Unknown]
  - Amenorrhoea [Unknown]
  - Mental disorder [Unknown]
